FAERS Safety Report 11836781 (Version 1)
Quarter: 2015Q4

REPORT INFORMATION
  Report Type: Spontaneous
  Country: US (occurrence: US)
  Receive Date: 20151215
  Receipt Date: 20151215
  Transmission Date: 20160305
  Serious: Yes (Other)
  Sender: FDA-Public Use
  Company Number: US-BAXALTA-2015BLT003094

PATIENT
  Sex: Female

DRUGS (1)
  1. GAMMAGARD LIQUID [Suspect]
     Active Substance: HUMAN IMMUNOGLOBULIN G
     Indication: PRODUCT USED FOR UNKNOWN INDICATION
     Dosage: 1X A WEEK, EVERY FRIDAY FOR FOUR HOURS WITH A NURSE
     Route: 042
     Dates: start: 2013

REACTIONS (2)
  - Babesiosis [Not Recovered/Not Resolved]
  - Lyme disease [Not Recovered/Not Resolved]
